FAERS Safety Report 25419232 (Version 1)
Quarter: 2025Q2

REPORT INFORMATION
  Report Type: Spontaneous
  Country: JP (occurrence: JP)
  Receive Date: 20250610
  Receipt Date: 20250610
  Transmission Date: 20250717
  Serious: Yes (Death, Life-Threatening, Other)
  Sender: ELI LILLY AND COMPANY
  Company Number: JP-ELI_LILLY_AND_COMPANY-JP202506007496

PATIENT
  Age: 75 Year
  Sex: Male

DRUGS (6)
  1. GEMCITABINE HYDROCHLORIDE [Suspect]
     Active Substance: GEMCITABINE HYDROCHLORIDE
     Indication: Pancreatic carcinoma
     Route: 041
  2. PACLITAXEL [Concomitant]
     Active Substance: PACLITAXEL
     Indication: Pancreatic carcinoma
  3. LOXOPROFEN [Concomitant]
     Active Substance: LOXOPROFEN
  4. OXYCODONE [Concomitant]
     Active Substance: OXYCODONE
  5. BETAMETHASONE [Concomitant]
     Active Substance: BETAMETHASONE
  6. RABEPRAZOLE [Concomitant]
     Active Substance: RABEPRAZOLE
     Indication: Prophylaxis against gastrointestinal ulcer

REACTIONS (7)
  - Liver abscess [Fatal]
  - Pancreatic abscess [Fatal]
  - Biliary tract infection [Fatal]
  - Neutropenia [Recovering/Resolving]
  - Disseminated intravascular coagulation [Unknown]
  - Malignant neoplasm progression [Unknown]
  - Drug ineffective [Unknown]
